FAERS Safety Report 9239211 (Version 2)
Quarter: 2013Q2

REPORT INFORMATION
  Report Type: Spontaneous
  Country: CO (occurrence: CO)
  Receive Date: 20130417
  Receipt Date: 20130522
  Transmission Date: 20140414
  Serious: Yes (Other)
  Sender: FDA-Public Use
  Company Number: CO-VERTEX PHARMACEUTICALS INC.-2013-004975

PATIENT
  Age: 54 Year
  Sex: Male
  Weight: 74 kg

DRUGS (5)
  1. INCIVO [Suspect]
     Indication: HEPATITIS C
     Dosage: 375 MG, TID
     Route: 065
     Dates: start: 20130222
  2. RIBAVIRIN [Concomitant]
     Indication: HEPATITIS C
     Dosage: DOSAGE FORM: TABLET
     Route: 048
     Dates: start: 20130222
  3. INTERFERON [Concomitant]
     Indication: HEPATITIS C
     Dosage: DOSAGE FORM: UNKNOWN
     Route: 058
     Dates: start: 20130222
  4. ENALAPRIL [Concomitant]
     Indication: HYPERTENSION
     Dosage: DOSAGE FORM: TABLET
     Route: 048
     Dates: start: 2008
  5. ACETAMINOPHEN [Concomitant]
     Indication: PAIN
     Dosage: 500 MG, UNK
     Route: 048
     Dates: start: 20130322

REACTIONS (4)
  - Paraesthesia [Not Recovered/Not Resolved]
  - Paraesthesia [Not Recovered/Not Resolved]
  - Rash [Unknown]
  - Pruritus [Unknown]
